FAERS Safety Report 4722809-7 (Version None)
Quarter: 2005Q3

REPORT INFORMATION
  Report Type: 
  Country: None (occurrence: None)
  Receive Date: 20050722
  Receipt Date: 20050630
  Transmission Date: 20060218
  Serious: Yes (Hospitalization)
  Sender: FDA-Public Use
  Company Number: US-MERCK-0507USA00259

PATIENT
  Age: 74 Year
  Sex: Male

DRUGS (9)
  1. VYTORIN [Suspect]
     Indication: CORONARY ARTERY DISEASE
     Route: 048
     Dates: start: 20050101, end: 20050627
  2. VYTORIN [Suspect]
     Route: 048
     Dates: start: 20050701
  3. VYTORIN [Suspect]
     Indication: HYPERLIPIDAEMIA
     Route: 048
     Dates: start: 20050101, end: 20050627
  4. VYTORIN [Suspect]
     Route: 048
     Dates: start: 20050701
  5. QUININE [Concomitant]
     Indication: ATRIAL FIBRILLATION
     Route: 048
     Dates: end: 20050627
  6. SPIRONOLACTONE [Concomitant]
     Indication: CARDIAC FAILURE CONGESTIVE
     Route: 048
     Dates: end: 20050627
  7. LASIX [Concomitant]
     Indication: CARDIAC FAILURE CONGESTIVE
     Route: 048
  8. NORVASC [Concomitant]
     Indication: HYPERTENSION
     Route: 048
     Dates: end: 20050627
  9. AVANDIA [Concomitant]
     Indication: DIABETES MELLITUS
     Route: 048
     Dates: end: 20050629

REACTIONS (3)
  - CHILLS [None]
  - PYREXIA [None]
  - WEIGHT DECREASED [None]
